FAERS Safety Report 15633933 (Version 1)
Quarter: 2018Q4

REPORT INFORMATION
  Report Type: Spontaneous
  Country: LB (occurrence: LB)
  Receive Date: 20181119
  Receipt Date: 20181119
  Transmission Date: 20190205
  Serious: Yes (Death, Other)
  Sender: FDA-Public Use
  Company Number: PHHY2018LB150119

PATIENT
  Age: 21 Year
  Sex: Female

DRUGS (9)
  1. PREDNISONE. [Suspect]
     Active Substance: PREDNISONE
     Dosage: UNK
     Route: 037
     Dates: start: 20180201
  2. L-ASPARAGINASE [Suspect]
     Active Substance: ASPARAGINASE
     Indication: ACUTE BIPHENOTYPIC LEUKAEMIA
     Dosage: 6000 (UNITS/M2 3 TIMES WEEKLY FOR 9 DOSES)
     Route: 037
     Dates: start: 20171229
  3. DAUNOMYCIN [Suspect]
     Active Substance: DAUNORUBICIN
     Dosage: UNK
     Route: 037
     Dates: start: 20180201
  4. VENETOCLAX. [Suspect]
     Active Substance: VENETOCLAX
     Indication: ACUTE BIPHENOTYPIC LEUKAEMIA
     Dosage: 400 MG, QD
     Route: 065
     Dates: start: 20180117
  5. L-ASPARAGINASE [Suspect]
     Active Substance: ASPARAGINASE
     Dosage: UNK
     Route: 037
     Dates: start: 20180201
  6. VINCRISTINE [Suspect]
     Active Substance: VINCRISTINE
     Dosage: UNK
     Route: 037
     Dates: start: 20180201
  7. PREDNISONE. [Suspect]
     Active Substance: PREDNISONE
     Indication: ACUTE BIPHENOTYPIC LEUKAEMIA
     Dosage: 60 MG/M2, QD
     Route: 037
     Dates: start: 20171229
  8. DAUNOMYCIN [Suspect]
     Active Substance: DAUNORUBICIN
     Indication: ACUTE BIPHENOTYPIC LEUKAEMIA
     Dosage: 25 MG/M2, QW
     Route: 037
     Dates: start: 20171229
  9. VINCRISTINE [Suspect]
     Active Substance: VINCRISTINE
     Indication: ACUTE BIPHENOTYPIC LEUKAEMIA
     Dosage: 1.2 MG/M2, (CAPPED AT 2 MG)
     Route: 037
     Dates: start: 20171229

REACTIONS (6)
  - Myeloid leukaemia [Unknown]
  - Mucormycosis [Unknown]
  - Aspergillus infection [Unknown]
  - General physical health deterioration [Fatal]
  - Sinus disorder [Unknown]
  - Product use in unapproved indication [Unknown]

NARRATIVE: CASE EVENT DATE: 20170717
